FAERS Safety Report 22152915 (Version 1)
Quarter: 2023Q1

REPORT INFORMATION
  Report Type: Spontaneous
  Country: US (occurrence: None)
  Receive Date: 20230329
  Receipt Date: 20230329
  Transmission Date: 20230417
  Serious: Yes (Other)
  Sender: FDA-Public Use
  Company Number: None

PATIENT
  Age: 70 Year
  Sex: Male
  Weight: 112.05 kg

DRUGS (12)
  1. DUPIXENT [Suspect]
     Active Substance: DUPILUMAB
     Indication: Chronic rhinosinusitis with nasal polyps
     Dosage: OTHER FREQUENCY : 2 WEEKS;?
     Route: 058
     Dates: start: 20221230, end: 20230318
  2. BREO ELLIPTA [Concomitant]
     Active Substance: FLUTICASONE FUROATE\VILANTEROL TRIFENATATE
  3. ASTELIN [Concomitant]
     Active Substance: AZELASTINE HYDROCHLORIDE
  4. ZINC [Concomitant]
     Active Substance: ZINC
  5. VITAMIN D3 [Concomitant]
     Active Substance: CHOLECALCIFEROL
  6. VITAMINS [Concomitant]
     Active Substance: VITAMINS
  7. CANNABIDIOL [Concomitant]
     Active Substance: CANNABIDIOL
  8. CELEBREX [Concomitant]
     Active Substance: CELECOXIB
  9. TADALAFIL [Concomitant]
     Active Substance: TADALAFIL
  10. LORAZEPAM [Concomitant]
     Active Substance: LORAZEPAM
  11. VENTOLIN [Concomitant]
     Active Substance: ALBUTEROL SULFATE
  12. FLONASE [Concomitant]
     Active Substance: FLUTICASONE PROPIONATE

REACTIONS (4)
  - Rash [None]
  - Skin exfoliation [None]
  - Erythema [None]
  - Malassezia infection [None]

NARRATIVE: CASE EVENT DATE: 20230318
